FAERS Safety Report 4675474-1 (Version None)
Quarter: 2005Q2

REPORT INFORMATION
  Report Type: 
  Country: None (occurrence: None)
  Receive Date: 20050527
  Receipt Date: 20050317
  Transmission Date: 20051028
  Serious: Yes (Other)
  Sender: FDA-Public Use
  Company Number: US-BRISTOL-MYERS SQUIBB COMPANY-12901161

PATIENT
  Age: 58 Year
  Sex: Male
  Weight: 68 kg

DRUGS (5)
  1. ABILIFY [Suspect]
     Indication: BIPOLAR DISORDER
  2. ABILIFY [Suspect]
     Indication: HALLUCINATION, AUDITORY
  3. PROVIGIL [Concomitant]
  4. COGENTIN [Concomitant]
  5. LUVOX [Concomitant]

REACTIONS (2)
  - ASTHENIA [None]
  - SUICIDAL IDEATION [None]
